FAERS Safety Report 10011781 (Version 1)
Quarter: 2014Q1

REPORT INFORMATION
  Report Type: Spontaneous
  Country: US (occurrence: None)
  Receive Date: 20140312
  Receipt Date: 20140312
  Transmission Date: 20141002
  Serious: Yes (Hospitalization)
  Sender: FDA-Public Use
  Company Number: 2014P1001931

PATIENT
  Age: 60 Year
  Sex: Male

DRUGS (2)
  1. INFIURMORPH [Suspect]
     Indication: PAIN
     Route: 037
  2. COMPOUNDED BACLOFEN [Suspect]
     Indication: PAIN
     Route: 037

REACTIONS (3)
  - Seroma [None]
  - Therapeutic response decreased [None]
  - Headache [None]
